FAERS Safety Report 21218087 (Version 1)
Quarter: 2022Q3

REPORT INFORMATION
  Report Type: Spontaneous
  Country: US (occurrence: US)
  Receive Date: 20220816
  Receipt Date: 20220816
  Transmission Date: 20221027
  Serious: Yes (Death, Other)
  Sender: FDA-Public Use
  Company Number: US-SA-SAC20220814000293

PATIENT
  Age: 46 Year
  Sex: Male

DRUGS (2)
  1. ZANTAC [Suspect]
     Active Substance: RANITIDINE HYDROCHLORIDE
     Indication: Dyspepsia
     Dosage: 75 MG
     Dates: start: 198901
  2. ZANTAC [Suspect]
     Active Substance: RANITIDINE HYDROCHLORIDE
     Dosage: 150 MG
     Dates: end: 201712

REACTIONS (4)
  - Testis cancer [Fatal]
  - Prostate cancer [Fatal]
  - Lung neoplasm malignant [Fatal]
  - Colorectal cancer stage III [Fatal]

NARRATIVE: CASE EVENT DATE: 20030101
